FAERS Safety Report 5502449-2 (Version None)
Quarter: 2007Q4

REPORT INFORMATION
  Report Type: 
  Country: None (occurrence: None)
  Receive Date: 20071030
  Receipt Date: 20071018
  Transmission Date: 20080405
  Serious: Yes (Other)
  Sender: FDA-Public Use
  Company Number: US-PFIZER INC-2007081862

PATIENT
  Sex: Male
  Weight: 109.8 kg

DRUGS (4)
  1. CHANTIX [Suspect]
     Indication: SMOKING CESSATION THERAPY
     Route: 048
     Dates: start: 20070801, end: 20070801
  2. ASPIRIN [Concomitant]
     Dosage: TEXT:EVERY OTHER DAY
     Route: 048
  3. PROTONIX [Concomitant]
     Route: 048
  4. DIOVAN [Concomitant]
     Route: 048

REACTIONS (7)
  - BLOOD CHOLESTEROL INCREASED [None]
  - BLOOD GLUCOSE INCREASED [None]
  - COLON POLYPECTOMY [None]
  - GASTRIC DISORDER [None]
  - GASTROOESOPHAGEAL REFLUX DISEASE [None]
  - LARYNGEAL OEDEMA [None]
  - WEIGHT DECREASED [None]
